FAERS Safety Report 4515598-2 (Version None)
Quarter: 2004Q4

REPORT INFORMATION
  Report Type: 
  Country: None (occurrence: None)
  Receive Date: 20040930
  Receipt Date: 20031106
  Transmission Date: 20050328
  Serious: Yes (Hospitalization, Other)
  Sender: FDA-Public Use
  Company Number: US-JNJFOC-20030904246

PATIENT
  Age: 62 Year
  Sex: Female

DRUGS (10)
  1. DITROPAN XL [Suspect]
     Indication: URINARY INCONTINENCE
     Dosage: 5 MG, 1 IN 1 DAY
     Dates: start: 20030910
  2. METOPROLOL TARTRATE [Concomitant]
  3. HYDROCHLOROTHIAZIDE (HYDROCHLORTHIAZIDE) [Concomitant]
  4. PLENDIL [Concomitant]
  5. ASPIRIN [Concomitant]
  6. TYLENOL [Concomitant]
  7. MELOXICAM (MELOXICAM) [Concomitant]
  8. PREMPRO 14/14 [Concomitant]
  9. HUMULIN INSULIN (INSULIN HUMAN ZINC SUSPENSION) [Concomitant]
  10. DIOVAN [Concomitant]

REACTIONS (1)
  - CONVULSION [None]
